FAERS Safety Report 8991452 (Version 1)
Quarter: 2012Q4

REPORT INFORMATION
  Report Type: Report from Study
  Country: CA (occurrence: CA)
  Receive Date: 20121231
  Receipt Date: 20121231
  Transmission Date: 20130627
  Serious: Yes (Hospitalization, Other)
  Sender: FDA-Public Use
  Company Number: CA-ROCHE-1173053

PATIENT
  Age: 43 Year
  Sex: Male
  Weight: 69.07 kg

DRUGS (13)
  1. OMALIZUMAB [Suspect]
     Indication: ASTHMA
     Dosage: 375 mg, Q2W
     Route: 058
     Dates: start: 20080806
  2. OMALIZUMAB [Suspect]
     Dosage: 375 mg, Q2W
     Route: 058
     Dates: start: 20100208
  3. OMALIZUMAB [Suspect]
     Dosage: 375 mg, UNK
     Route: 058
     Dates: start: 20100222
  4. PARACETAMOL [Concomitant]
     Indication: PRODUCT USED FOR UNKNOWN INDICATION
  5. CALCITONIN [Concomitant]
     Indication: PRODUCT USED FOR UNKNOWN INDICATION
  6. PREDNISONE [Concomitant]
     Indication: PRODUCT USED FOR UNKNOWN INDICATION
     Dosage: 60 mg, UNK
     Route: 065
  7. PREDNISONE [Concomitant]
     Dosage: 47.5 mg, UNK
     Route: 065
  8. ADVAIR [Concomitant]
     Indication: PRODUCT USED FOR UNKNOWN INDICATION
  9. SINGULAIR [Concomitant]
     Indication: PRODUCT USED FOR UNKNOWN INDICATION
  10. VENTOLIN [Concomitant]
     Indication: PRODUCT USED FOR UNKNOWN INDICATION
  11. SPIRIVA [Concomitant]
     Indication: PRODUCT USED FOR UNKNOWN INDICATION
  12. SYMBICORT [Concomitant]
     Indication: PRODUCT USED FOR UNKNOWN INDICATION
  13. BRICANYL [Concomitant]
     Indication: PRODUCT USED FOR UNKNOWN INDICATION

REACTIONS (23)
  - Pneumococcal infection [Recovering/Resolving]
  - Bronchitis [Unknown]
  - Pneumonia [Unknown]
  - Rib fracture [Unknown]
  - Blood pressure increased [Unknown]
  - Vomiting [Unknown]
  - Headache [Unknown]
  - Dizziness [Unknown]
  - Nausea [Unknown]
  - Asthma [Unknown]
  - Heart rate increased [Unknown]
  - Cough [Unknown]
  - Oedema [Unknown]
  - Respiratory rate increased [Unknown]
  - Dyspnoea [Unknown]
  - Bronchospasm [Unknown]
  - Fatigue [Unknown]
  - Dysphonia [Unknown]
  - Musculoskeletal chest pain [Unknown]
  - Feeling abnormal [Unknown]
  - Rales [Unknown]
  - Influenza [Unknown]
  - Diarrhoea [Unknown]
